FAERS Safety Report 4667441-9 (Version None)
Quarter: 2005Q2

REPORT INFORMATION
  Report Type: 
  Country: None (occurrence: None)
  Receive Date: 20050519
  Receipt Date: 20050519
  Transmission Date: 20051028
  Serious: Yes (Life-Threatening, Disabling, Other)
  Sender: FDA-Public Use
  Company Number: None

PATIENT
  Age: 37 Year
  Sex: Male
  Weight: 74.8435 kg

DRUGS (2)
  1. MEFLOQUINE [Suspect]
     Indication: PLASMODIUM FALCIPARUM INFECTION
     Dosage: 2OR3XDAILY   ORAL
     Route: 048
     Dates: start: 20030615, end: 20030621
  2. MEFLOQUINE [Suspect]
     Indication: PLASMODIUM FALCIPARUM INFECTION
     Dosage: STRONGER    SAME    ORAL
     Route: 048
     Dates: start: 20030715, end: 20030721

REACTIONS (3)
  - ILL-DEFINED DISORDER [None]
  - INJURY [None]
  - MENTAL DISORDER [None]
